FAERS Safety Report 10481895 (Version 2)
Quarter: 2014Q4

REPORT INFORMATION
  Report Type: Spontaneous
  Country: JP (occurrence: JP)
  Receive Date: 20140929
  Receipt Date: 20141009
  Transmission Date: 20150528
  Serious: Yes (Other)
  Sender: FDA-Public Use
  Company Number: PHHY2014JP125224

PATIENT
  Age: 60 Year
  Sex: Female

DRUGS (3)
  1. STRONTIUM (89 SR) CHLORIDE [Concomitant]
     Active Substance: STRONTIUM CHLORIDE
     Indication: METASTASES TO BONE
     Route: 065
     Dates: start: 20140204, end: 20140204
  2. RANMARK [Concomitant]
     Active Substance: DENOSUMAB
     Indication: METASTASES TO BONE
     Dosage: 120 MG, UNK
     Route: 065
  3. FEMARA [Suspect]
     Active Substance: LETROZOLE
     Indication: BREAST CANCER
     Dosage: 2.5 MG, DAILY
     Route: 048
     Dates: start: 20140213, end: 20140415

REACTIONS (1)
  - Interstitial lung disease [Recovering/Resolving]

NARRATIVE: CASE EVENT DATE: 20140410
